FAERS Safety Report 10885679 (Version 2)
Quarter: 2015Q2

REPORT INFORMATION
  Report Type: Report from Study
  Country: CA (occurrence: CA)
  Receive Date: 20150304
  Receipt Date: 20150420
  Transmission Date: 20150821
  Serious: Yes (Hospitalization)
  Sender: FDA-Public Use
  Company Number: CA-AMGEN-CANSL2015018123

PATIENT
  Age: 83 Year
  Sex: Female

DRUGS (3)
  1. VITAMINS                           /00067501/ [Concomitant]
     Active Substance: VITAMINS
     Dosage: UNK
  2. PROLIA [Suspect]
     Active Substance: DENOSUMAB
     Indication: OSTEOPOROSIS POSTMENOPAUSAL
     Dosage: 60 MG Q6MO
     Route: 058
     Dates: start: 20140610
  3. ACTONEL [Concomitant]
     Active Substance: RISEDRONATE SODIUM
     Dosage: UNK

REACTIONS (1)
  - Encephalitis [Unknown]
